FAERS Safety Report 10873163 (Version 2)
Quarter: 2015Q1

REPORT INFORMATION
  Report Type: Report from Study
  Country: CO (occurrence: CO)
  Receive Date: 20150227
  Receipt Date: 20150303
  Transmission Date: 20150721
  Serious: Yes (Other)
  Sender: FDA-Public Use
  Company Number: CO-BAYER-2014-158656

PATIENT
  Age: 42 Year
  Sex: Male

DRUGS (1)
  1. BETAFERON [Suspect]
     Active Substance: INTERFERON BETA-1B
     Indication: MULTIPLE SCLEROSIS
     Dosage: 250 ?G, QOD
     Route: 058
     Dates: start: 20090312

REACTIONS (5)
  - Limb discomfort [None]
  - Muscle spasms [None]
  - Pain in extremity [None]
  - Abasia [None]
  - Feeling hot [Recovered/Resolved]

NARRATIVE: CASE EVENT DATE: 20141004
